FAERS Safety Report 6425965-8 (Version None)
Quarter: 2009Q4

REPORT INFORMATION
  Report Type: 
  Country: None (occurrence: None)
  Receive Date: 20091103
  Receipt Date: 20091103
  Transmission Date: 20100525
  Serious: Yes (Hospitalization)
  Sender: FDA-Public Use
  Company Number: None

PATIENT
  Age: 58 Year
  Sex: Male

DRUGS (1)
  1. GABAPENTIN [Suspect]
     Indication: PAIN
     Dosage: 300 MG EVERY DAY PO
     Route: 048
     Dates: start: 20080925, end: 20081010

REACTIONS (4)
  - AZOTAEMIA [None]
  - MENTAL STATUS CHANGES [None]
  - PO2 DECREASED [None]
  - RENAL FAILURE ACUTE [None]
